FAERS Safety Report 6430118-3 (Version None)
Quarter: 2009Q4

REPORT INFORMATION
  Report Type: 
  Country: None (occurrence: None)
  Receive Date: 20091106
  Receipt Date: 20091028
  Transmission Date: 20100525
  Serious: Yes (Hospitalization, Other)
  Sender: FDA-Public Use
  Company Number: US-JNJFOC-20091008707

PATIENT
  Age: 74 Year
  Sex: Male
  Weight: 90.4 kg

DRUGS (10)
  1. REMICADE [Suspect]
     Route: 042
     Dates: start: 20060605, end: 20090101
  2. REMICADE [Suspect]
     Indication: PSORIATIC ARTHROPATHY
     Route: 042
     Dates: start: 20060605, end: 20090101
  3. REMICADE [Suspect]
     Indication: PSORIASIS
     Route: 042
     Dates: start: 20060605, end: 20090101
  4. HYDROCHLOROTHIAZIDE [Concomitant]
     Route: 048
  5. LISINOPRIL [Concomitant]
     Route: 048
  6. LASIX [Concomitant]
     Route: 048
  7. COUMADIN [Concomitant]
     Route: 048
  8. ZAROXOLYN [Concomitant]
     Route: 048
  9. ASPIRIN [Concomitant]
     Route: 048
  10. POTASSIUM REPLACEMENT [Concomitant]
     Route: 048

REACTIONS (4)
  - AORTIC VALVE REPLACEMENT [None]
  - ARTHRITIS INFECTIVE [None]
  - ARTHROPATHY [None]
  - MALAISE [None]
